FAERS Safety Report 14482461 (Version 1)
Quarter: 2018Q1

REPORT INFORMATION
  Report Type: Spontaneous
  Country: JP (occurrence: JP)
  Receive Date: 20180202
  Receipt Date: 20180202
  Transmission Date: 20180509
  Serious: Yes (Hospitalization)
  Sender: FDA-Public Use
  Company Number: JP-009507513-1801JPN014152

PATIENT
  Age: 90 Year
  Sex: Female

DRUGS (1)
  1. BONALON [Suspect]
     Active Substance: ALENDRONATE SODIUM
     Indication: OSTEOPOROSIS
     Dosage: 35 MG, PER WEEK
     Route: 048

REACTIONS (2)
  - Osteonecrosis of jaw [Recovering/Resolving]
  - Hospitalisation [Unknown]
